FAERS Safety Report 13014957 (Version 2)
Quarter: 2017Q2

REPORT INFORMATION
  Report Type: Report from Study
  Country: JP (occurrence: JP)
  Receive Date: 20161210
  Receipt Date: 20170426
  Transmission Date: 20170830
  Serious: No
  Sender: FDA-Public Use
  Company Number: PHJP2016JP029593

PATIENT
  Age: 70 Year
  Sex: Female

DRUGS (1)
  1. COSENTYX [Suspect]
     Active Substance: SECUKINUMAB
     Indication: PUSTULAR PSORIASIS
     Dosage: 300 MG, UNK
     Route: 058

REACTIONS (5)
  - Oral candidiasis [Recovering/Resolving]
  - Infective glossitis [Unknown]
  - Glossodynia [Unknown]
  - Pharyngitis [Unknown]
  - Eating disorder [Unknown]
